FAERS Safety Report 8389879-9 (Version None)
Quarter: 2012Q2

REPORT INFORMATION
  Report Type: 
  Country: None (occurrence: None)
  Receive Date: 20120529
  Receipt Date: 20120514
  Transmission Date: 20120825
  Serious: No
  Sender: FDA-Public Use
  Company Number: FR-JNJFOC-20120515794

PATIENT
  Age: 6 Decade
  Sex: Female

DRUGS (1)
  1. DURAGESIC-100 [Suspect]
     Indication: PRODUCT USED FOR UNKNOWN INDICATION
     Route: 062

REACTIONS (3)
  - INTERCEPTED DRUG PRESCRIBING ERROR [None]
  - OFF LABEL USE [None]
  - DRUG PRESCRIBING ERROR [None]
